FAERS Safety Report 12703786 (Version 2)
Quarter: 2016Q3

REPORT INFORMATION
  Report Type: Spontaneous
  Country: FR (occurrence: FR)
  Receive Date: 20160831
  Receipt Date: 20160914
  Transmission Date: 20161109
  Serious: Yes (Death, Hospitalization, Other)
  Sender: FDA-Public Use
  Company Number: FR-JNJFOC-20160825287

PATIENT

DRUGS (2)
  1. YONDELIS [Suspect]
     Active Substance: TRABECTEDIN
     Indication: SOFT TISSUE SARCOMA
     Route: 042
     Dates: start: 200501, end: 201405
  2. DEXAMETHASONE. [Concomitant]
     Active Substance: DEXAMETHASONE
     Indication: PREMEDICATION
     Route: 065

REACTIONS (15)
  - Sepsis [Unknown]
  - Neutropenia [Unknown]
  - Hyperbilirubinaemia [Unknown]
  - Dyspnoea [Unknown]
  - Septic shock [Fatal]
  - Febrile neutropenia [Fatal]
  - Vomiting [Unknown]
  - Acute leukaemia [Unknown]
  - Alanine aminotransferase increased [Unknown]
  - Nausea [Unknown]
  - Nervous system disorder [Fatal]
  - Aspartate aminotransferase increased [Unknown]
  - Fatigue [Unknown]
  - Anaemia [Unknown]
  - Thrombocytopenia [Unknown]
